FAERS Safety Report 6171508-6 (Version None)
Quarter: 2009Q2

REPORT INFORMATION
  Report Type: 
  Country: None (occurrence: None)
  Receive Date: 20090429
  Receipt Date: 20090423
  Transmission Date: 20091009
  Serious: Yes (Hospitalization, Other)
  Sender: FDA-Public Use
  Company Number: SE-ASTRAZENECA-2009SE01601

PATIENT
  Age: 32126 Day
  Sex: Female

DRUGS (9)
  1. FASLODEX [Suspect]
     Indication: BREAST CANCER
     Route: 030
     Dates: start: 20061222, end: 20061222
  2. FASLODEX [Suspect]
     Route: 030
     Dates: start: 20070105
  3. ARIMIDEX [Suspect]
     Indication: BREAST CANCER
     Route: 048
     Dates: start: 20061222, end: 20090423
  4. ACETYLCYSTEINE [Concomitant]
     Indication: RESPIRATORY DISORDER
     Route: 048
     Dates: start: 20061211
  5. NEXIUM [Concomitant]
     Indication: GASTRIC ULCER
     Route: 048
     Dates: start: 20061213
  6. PAMIDRONAT [Concomitant]
     Indication: METASTASES TO BONE
     Route: 042
     Dates: start: 20070705
  7. TIPAROL [Concomitant]
     Indication: ARTHRALGIA
     Route: 048
     Dates: start: 20090213
  8. NULYTELY [Concomitant]
     Indication: CONSTIPATION PROPHYLAXIS
     Route: 048
     Dates: start: 20090213
  9. ALVEDON [Concomitant]
     Indication: PAIN
     Dosage: WHEN NEEDED
     Route: 048
     Dates: start: 20080801

REACTIONS (1)
  - SPINAL CORD COMPRESSION [None]
